FAERS Safety Report 4340067-2 (Version None)
Quarter: 2004Q2

REPORT INFORMATION
  Report Type: 
  Country: None (occurrence: None)
  Receive Date: 20040415
  Receipt Date: 20040415
  Transmission Date: 20050107
  Serious: Yes (Hospitalization)
  Sender: FDA-Public Use
  Company Number: None

PATIENT
  Sex: Male
  Weight: 74.3899 kg

DRUGS (8)
  1. EPIRUBICIN [Suspect]
     Indication: HEPATIC NEOPLASM MALIGNANT
     Dosage: 20 MG WEEKLY IV
     Route: 042
     Dates: start: 20031019, end: 20040212
  2. THALIDOMIDE [Suspect]
     Indication: HEPATIC NEOPLASM MALIGNANT
     Dosage: 300 MG DAILY ORAL
     Route: 048
     Dates: start: 20031019, end: 20040219
  3. COUMADIN [Concomitant]
  4. ATENOLOL [Concomitant]
  5. LASIX [Concomitant]
  6. NORVASC [Concomitant]
  7. COLACE [Concomitant]
  8. MYCELEX [Concomitant]

REACTIONS (5)
  - CRYPTOGENIC ORGANIZING PNEUMONIA [None]
  - HYPOXIA [None]
  - PNEUMONITIS [None]
  - PULMONARY OEDEMA [None]
  - TREATMENT NONCOMPLIANCE [None]
